FAERS Safety Report 9340616 (Version 1)
Quarter: 2013Q2

REPORT INFORMATION
  Report Type: Spontaneous
  Country: LT (occurrence: LT)
  Receive Date: 20130610
  Receipt Date: 20130610
  Transmission Date: 20140414
  Serious: Yes (Other)
  Sender: FDA-Public Use
  Company Number: PHHY2013LT057614

PATIENT
  Age: 25 Year
  Sex: Male

DRUGS (4)
  1. CICLOSPORIN [Suspect]
     Indication: RENAL TRANSPLANT
     Dosage: 225 MG, UNK
  2. AZATHIOPRINE [Suspect]
     Indication: RENAL TRANSPLANT
     Dosage: 75 MG, UNK
  3. METHYLPREDNISOLONE [Suspect]
     Indication: RENAL TRANSPLANT
     Dosage: 4 MG, UNK
  4. BLOOD TRANSFUSION [Concomitant]

REACTIONS (5)
  - Testis cancer [Recovered/Resolved]
  - Testicular hypertrophy [Recovered/Resolved]
  - Germ cell cancer [Recovered/Resolved]
  - Metastases to lung [Recovered/Resolved]
  - Metastases to kidney [Recovered/Resolved]
